FAERS Safety Report 16469033 (Version 4)
Quarter: 2019Q3

REPORT INFORMATION
  Report Type: Spontaneous
  Country: US (occurrence: US)
  Receive Date: 20190624
  Receipt Date: 20190920
  Transmission Date: 20191004
  Serious: No
  Sender: FDA-Public Use
  Company Number: US-PFIZER INC-2019268070

PATIENT
  Age: 75 Year
  Sex: Female
  Weight: 63.39 kg

DRUGS (7)
  1. LEVOTHYROXINE. [Concomitant]
     Active Substance: LEVOTHYROXINE
     Dosage: UNK (30 + YRS AGO SAME TIME W (WITH) PREMARIN)
  2. ESTRADIOL. [Suspect]
     Active Substance: ESTRADIOL
     Indication: HORMONE REPLACEMENT THERAPY
     Dosage: 1 MG, UNK (2 WEEKS ONLY)
     Dates: start: 201904
  3. PREMARIN [Concomitant]
     Active Substance: ESTROGENS, CONJUGATED
  4. ALEVE [Concomitant]
     Active Substance: NAPROXEN SODIUM
     Dosage: UNK (12 HR AM + PM, OVER THE COUNTER NOW AND EVERY)
  5. AMLODIPINE BESYLATE. [Concomitant]
     Active Substance: AMLODIPINE BESYLATE
     Dosage: 5 MG, UNK (5 MG APPROX 3 YRS)
  6. LOSARTAN AND HYDROCHLOROTHIAZIDE [Concomitant]
     Active Substance: HYDROCHLOROTHIAZIDE\LOSARTAN POTASSIUM
     Dosage: UNK (100/12MG APPROX 3 YRS)
  7. ESTRADIOL. [Suspect]
     Active Substance: ESTRADIOL
     Dosage: UNK, 1X/DAY

REACTIONS (4)
  - Drug ineffective [Recovered/Resolved]
  - Off label use [Unknown]
  - Emotional disorder [Unknown]
  - Headache [Unknown]
